FAERS Safety Report 8201349-7 (Version None)
Quarter: 2012Q1

REPORT INFORMATION
  Report Type: 
  Country: None (occurrence: None)
  Receive Date: 20120312
  Receipt Date: 20120307
  Transmission Date: 20120608
  Serious: Yes (Other)
  Sender: FDA-Public Use
  Company Number: US-PFIZER INC-2012061502

PATIENT
  Sex: Female
  Weight: 108.84 kg

DRUGS (8)
  1. VALTREX [Concomitant]
     Dosage: UNK
  2. ATENOLOL [Concomitant]
     Indication: HYPERTENSION
     Dosage: 25 MG, UNK
  3. ZOCOR [Concomitant]
     Indication: BLOOD CHOLESTEROL INCREASED
     Dosage: UNK
  4. LYRICA [Suspect]
     Indication: NEURALGIA
     Dosage: 50 MG, 2X/DAY
     Route: 048
     Dates: start: 20120228
  5. LYRICA [Suspect]
  6. LYRICA [Suspect]
  7. TEGRETOL [Suspect]
     Indication: BIPOLAR DISORDER
     Dosage: 400 MG, 1X/DAY
     Route: 048
     Dates: start: 20050101
  8. EFFEXOR XR [Suspect]
     Indication: DEPRESSION
     Dosage: 150 MG, 1X/DAY
     Route: 048
     Dates: start: 20050101

REACTIONS (7)
  - LUMBAR SPINAL STENOSIS [None]
  - NEURALGIA [None]
  - DRUG INEFFECTIVE [None]
  - NASAL DRYNESS [None]
  - DRY EYE [None]
  - CONSTIPATION [None]
  - LIP DRY [None]
